FAERS Safety Report 9259100 (Version 2)
Quarter: 2013Q2

REPORT INFORMATION
  Report Type: Spontaneous
  Country: US (occurrence: US)
  Receive Date: 20130426
  Receipt Date: 20130502
  Transmission Date: 20140414
  Serious: Yes (Other)
  Sender: FDA-Public Use
  Company Number: US-PFIZER INC-2013131184

PATIENT
  Sex: Male

DRUGS (3)
  1. LYRICA [Suspect]
     Indication: CONVULSION
     Dosage: UNK
  2. KEPPRA [Suspect]
     Dosage: UNK
  3. NORCO [Concomitant]
     Dosage: UNK

REACTIONS (3)
  - Convulsion [Unknown]
  - Pyrexia [Unknown]
  - Anger [Unknown]
